FAERS Safety Report 9066140 (Version 1)
Quarter: 2013Q1

REPORT INFORMATION
  Report Type: Report from Study
  Country: US (occurrence: US)
  Receive Date: 20130214
  Receipt Date: 20130214
  Transmission Date: 20140127
  Serious: No
  Sender: FDA-Public Use
  Company Number: US-VERTEX PHARMACEUTICALS INC.-2013-001946

PATIENT
  Sex: Male

DRUGS (10)
  1. VX-950 (TELAPREVIR) [Suspect]
     Indication: HEPATITIS C
     Dosage: 750 MG, TID
     Route: 048
     Dates: start: 20130125
  2. RIBASPHERE [Suspect]
     Indication: HEPATITIS C
     Dosage: 3AM/ 2PM
     Dates: start: 20130125
  3. PEGASYS [Suspect]
     Indication: HEPATITIS C
     Dosage: 180 ?G, QW
     Route: 058
     Dates: start: 20130125
  4. CITALOPRAM HBR [Concomitant]
     Dosage: 10 MG, QD
  5. LORAZEPAM [Concomitant]
     Dosage: 0.5 MG, QD
  6. METFORMIN HCL [Concomitant]
     Dosage: 1000 MG, QD
  7. GLIPIZIDE [Concomitant]
     Dosage: 10 MG, QD
  8. JANUVIA [Concomitant]
     Dosage: 100 MG, QD
  9. LOTREL [Concomitant]
     Dosage: 10-20MG, QD
  10. AVAPRO [Concomitant]
     Dosage: 300 MG, QD

REACTIONS (3)
  - Fatigue [Unknown]
  - Rash [Unknown]
  - Diarrhoea [Unknown]
